FAERS Safety Report 12821111 (Version 3)
Quarter: 2016Q4

REPORT INFORMATION
  Report Type: Spontaneous
  Country: US (occurrence: US)
  Receive Date: 20161006
  Receipt Date: 20161110
  Transmission Date: 20170207
  Serious: No
  Sender: FDA-Public Use
  Company Number: US-PFIZER INC-2016464873

PATIENT
  Age: 69 Year
  Sex: Female
  Weight: 62.6 kg

DRUGS (22)
  1. ZOLPIDEM TARTRATE. [Concomitant]
     Active Substance: ZOLPIDEM TARTRATE
     Indication: INSOMNIA
     Dosage: 5 MG, AS NEEDED (AT BEDTIME)
     Route: 048
  2. RED YEAST RICE [Concomitant]
     Active Substance: DIETARY SUPPLEMENT
     Dosage: 600 MG, 1X/DAY
     Route: 048
  3. ZANTAC [Concomitant]
     Active Substance: RANITIDINE HYDROCHLORIDE
     Dosage: 150 MG, 1X/DAY (AS NEEDED)
     Route: 048
  4. LACTULOSE. [Concomitant]
     Active Substance: LACTULOSE
     Dosage: 15 ML, AS NEEDED (10 GM/15 ML)
     Route: 048
     Dates: end: 20161021
  5. LORAZEPAM. [Concomitant]
     Active Substance: LORAZEPAM
     Indication: ANXIETY
     Dosage: 0.5 MG, 2X/DAY
     Route: 048
  6. PREMARIN [Concomitant]
     Active Substance: ESTROGENS, CONJUGATED
     Dosage: 0.625 MG/G, UNK
     Route: 067
  7. LYRICA [Suspect]
     Active Substance: PREGABALIN
     Indication: PAIN
     Dosage: 75 MG, 3X/DAY
     Route: 048
  8. LYRICA [Suspect]
     Active Substance: PREGABALIN
     Indication: PAIN IN EXTREMITY
  9. LYRICA [Suspect]
     Active Substance: PREGABALIN
     Indication: NEURALGIA
  10. LYRICA [Suspect]
     Active Substance: PREGABALIN
     Indication: ARTHRALGIA
     Dosage: UNK (ONE (LYRICA) EVERY OTHER DAY)
  11. FISH OIL [Concomitant]
     Active Substance: FISH OIL
     Dosage: 1000 MG, 1X/DAY
     Route: 048
  12. MULTIVITAMINS [Suspect]
     Active Substance: VITAMINS
     Dosage: 1 TABLET, 1X/DAY
     Route: 048
  13. NIACIN. [Concomitant]
     Active Substance: NIACIN
     Dosage: 200 MG, 1X/DAY
     Route: 048
  14. VITAMIN D3 [Concomitant]
     Active Substance: CHOLECALCIFEROL
     Dosage: 1 DF, 1X/DAY (2000, ONCE A DAY)
     Route: 048
  15. BUPROPION HCL [Concomitant]
     Active Substance: BUPROPION HYDROCHLORIDE
     Dosage: 100 MG, 1X/DAY
     Route: 048
  16. LACTULOSE. [Concomitant]
     Active Substance: LACTULOSE
     Dosage: 450 ML, UNK
  17. ZOFRAN [Concomitant]
     Active Substance: ONDANSETRON HYDROCHLORIDE
     Dosage: 8 MG, 1X/DAY (4MG 2 TABLETS ORALLY ONCE A DAY)
     Route: 048
  18. NEXIUM [Concomitant]
     Active Substance: ESOMEPRAZOLE MAGNESIUM
     Dosage: 20 MG, 1X/DAY (IF NEEDED)
     Route: 048
  19. LYRICA [Suspect]
     Active Substance: PREGABALIN
     Indication: BACK PAIN
  20. LYRICA [Suspect]
     Active Substance: PREGABALIN
     Indication: PAIN
  21. COQ10 [Concomitant]
     Active Substance: UBIDECARENONE
     Dosage: 100 MG, 1X/DAY
     Route: 048
  22. THEANINE [Concomitant]
     Active Substance: THEANINE
     Dosage: 100 MG, 1X/DAY (AT BEDTIME)
     Route: 048

REACTIONS (7)
  - Bedridden [Unknown]
  - Memory impairment [Unknown]
  - Malaise [Unknown]
  - Drug ineffective [Unknown]
  - Pain [Recovering/Resolving]
  - Meniscus injury [Unknown]
  - Crying [Unknown]
